FAERS Safety Report 23620939 (Version 1)
Quarter: 2024Q1

REPORT INFORMATION
  Report Type: Spontaneous
  Country: US (occurrence: US)
  Receive Date: 20240312
  Receipt Date: 20240312
  Transmission Date: 20240410
  Serious: Yes (Other)
  Sender: FDA-Public Use
  Company Number: US-AMGEN-USASP2024046633

PATIENT
  Age: 42 Year
  Sex: Female

DRUGS (10)
  1. OTEZLA [Suspect]
     Active Substance: APREMILAST
     Indication: Behcet^s syndrome
     Dosage: 30 MILLIGRAM, BID
     Route: 048
     Dates: start: 2019
  2. AIMOVIG [Suspect]
     Active Substance: ERENUMAB-AOOE
     Indication: Product used for unknown indication
     Dosage: UNK
     Route: 065
  3. CYCLOBENZAPRINE [Concomitant]
     Active Substance: CYCLOBENZAPRINE
  4. GABAPENTIN [Concomitant]
     Active Substance: GABAPENTIN
  5. MIRTAZAPINE [Concomitant]
     Active Substance: MIRTAZAPINE
  6. ONDANSETRON [Concomitant]
     Active Substance: ONDANSETRON
  7. PAROXETINE [Concomitant]
     Active Substance: PAROXETINE
  8. TRIAMCINE [Concomitant]
  9. Oragel [Concomitant]
     Indication: Stomatitis
  10. Equate [Concomitant]

REACTIONS (3)
  - Behcet^s syndrome [Not Recovered/Not Resolved]
  - Seizure [Not Recovered/Not Resolved]
  - Laryngitis [Not Recovered/Not Resolved]

NARRATIVE: CASE EVENT DATE: 20240101
